FAERS Safety Report 6690409-8 (Version None)
Quarter: 2010Q2

REPORT INFORMATION
  Report Type: 
  Country: None (occurrence: None)
  Receive Date: 20100421
  Receipt Date: 20090827
  Transmission Date: 20101027
  Serious: No
  Sender: FDA-Public Use
  Company Number: US-ASTRAZENECA-2009SE10269

PATIENT
  Age: 70 Year
  Sex: Male

DRUGS (4)
  1. CASODEX [Suspect]
     Route: 048
  2. ZOLADEX [Suspect]
     Dosage: EVERY THREE MONTHS
     Route: 058
  3. OXYGEN THERAPY [Concomitant]
  4. CORTICOSTEROIDS [Concomitant]

REACTIONS (2)
  - CHRONIC OBSTRUCTIVE PULMONARY DISEASE [None]
  - SLEEP APNOEA SYNDROME [None]
